FAERS Safety Report 6305744-2 (Version None)
Quarter: 2009Q3

REPORT INFORMATION
  Report Type: 
  Country: None (occurrence: None)
  Receive Date: 20090812
  Receipt Date: 20071119
  Transmission Date: 20100115
  Serious: Yes (Other)
  Sender: FDA-Public Use
  Company Number: US-ASTRAZENECA-2007UW13941

PATIENT
  Age: 14 Year
  Sex: Male
  Weight: 67.5 kg

DRUGS (15)
  1. SEROQUEL [Suspect]
     Indication: SLEEP DISORDER
     Route: 048
     Dates: start: 20050801, end: 20051101
  2. SEROQUEL [Suspect]
     Indication: ANXIETY
     Route: 048
     Dates: start: 20050801, end: 20051101
  3. SEROQUEL [Suspect]
     Indication: OBSESSIVE THOUGHTS
     Route: 048
     Dates: start: 20050801, end: 20051101
  4. SEROQUEL [Suspect]
     Route: 048
     Dates: start: 20051001, end: 20051123
  5. SEROQUEL [Suspect]
     Route: 048
     Dates: start: 20051001, end: 20051123
  6. SEROQUEL [Suspect]
     Route: 048
     Dates: start: 20051001, end: 20051123
  7. SEROQUEL [Suspect]
     Route: 048
     Dates: start: 20061030
  8. SEROQUEL [Suspect]
     Route: 048
     Dates: start: 20061030
  9. SEROQUEL [Suspect]
     Route: 048
     Dates: start: 20061030
  10. ABILIFY [Suspect]
     Indication: AGORAPHOBIA
     Dosage: 2.5-5 MG
     Dates: start: 20051110, end: 20051123
  11. PROZAC [Concomitant]
     Indication: AFFECTIVE DISORDER
     Dosage: 20-60 MG
     Route: 048
     Dates: start: 20031013
  12. PROZAC [Concomitant]
     Indication: ANXIETY
     Dosage: 20-60 MG
     Route: 048
     Dates: start: 20031013
  13. PROZAC [Concomitant]
     Indication: OBSESSIVE-COMPULSIVE DISORDER
     Dosage: 20-60 MG
     Route: 048
     Dates: start: 20031013
  14. PAXIL [Concomitant]
     Indication: ANXIETY
     Dosage: 40-120 MG
     Route: 048
     Dates: start: 20050701
  15. PAXIL [Concomitant]
     Indication: AGORAPHOBIA
     Dosage: 40-120 MG
     Route: 048
     Dates: start: 20050701

REACTIONS (12)
  - DIABETES MELLITUS [None]
  - FATIGUE [None]
  - HYPERGLYCAEMIA [None]
  - KETOACIDOSIS [None]
  - KETONURIA [None]
  - POLLAKIURIA [None]
  - POLYDIPSIA [None]
  - POLYURIA [None]
  - TYPE 1 DIABETES MELLITUS [None]
  - URINE ABNORMALITY [None]
  - VISION BLURRED [None]
  - WEIGHT DECREASED [None]
